FAERS Safety Report 6908431-2 (Version None)
Quarter: 2010Q3

REPORT INFORMATION
  Report Type: 
  Country: None (occurrence: None)
  Receive Date: 20100805
  Receipt Date: 20100802
  Transmission Date: 20110219
  Serious: Yes (Death)
  Sender: FDA-Public Use
  Company Number: GB-JNJFOC-20091103373

PATIENT
  Sex: Female
  Weight: 66.3 kg

DRUGS (14)
  1. DURAGESIC-100 [Suspect]
     Indication: SPONDYLITIS
     Route: 062
     Dates: end: 20090513
  2. DURAGESIC-100 [Suspect]
     Route: 062
     Dates: end: 20090513
  3. DURAGESIC-100 [Suspect]
     Route: 062
     Dates: end: 20090513
  4. DURAGESIC-100 [Suspect]
     Route: 062
     Dates: end: 20090513
  5. DURAGESIC-100 [Suspect]
     Indication: PAIN
     Route: 062
     Dates: end: 20090513
  6. DURAGESIC-100 [Suspect]
     Route: 062
     Dates: end: 20090513
  7. DURAGESIC-100 [Suspect]
     Route: 062
     Dates: end: 20090513
  8. DURAGESIC-100 [Suspect]
     Route: 062
     Dates: end: 20090513
  9. AMITRIPTYLINE HYDROCHLORIDE [Suspect]
     Indication: DEPRESSION
     Route: 065
     Dates: start: 20010112, end: 20090313
  10. GABAPENTIN [Concomitant]
     Indication: PAIN
     Route: 065
     Dates: start: 20080423, end: 20090513
  11. MELOXICAM [Concomitant]
     Indication: NECK PAIN
     Route: 065
     Dates: start: 20050121, end: 20090513
  12. CANDESARTAN [Concomitant]
     Indication: HYPERTENSION
     Route: 065
     Dates: start: 20041119, end: 20090513
  13. CETIRIZINE HCL [Concomitant]
     Indication: PRODUCT USED FOR UNKNOWN INDICATION
     Route: 065
  14. DIAZEPAM [Concomitant]
     Route: 065

REACTIONS (5)
  - DRUG ADMINISTRATION ERROR [None]
  - DRUG TOXICITY [None]
  - MYOCARDIAL ISCHAEMIA [None]
  - PRODUCT QUALITY ISSUE [None]
  - WRONG TECHNIQUE IN DRUG USAGE PROCESS [None]
